FAERS Safety Report 9557673 (Version 1)
Quarter: 2013Q3

REPORT INFORMATION
  Report Type: Spontaneous
  Country: FR (occurrence: FR)
  Receive Date: 20130926
  Receipt Date: 20130926
  Transmission Date: 20140515
  Serious: Yes (Other)
  Sender: FDA-Public Use
  Company Number: FR-INCYTE CORPORATION-2013IN002208

PATIENT
  Age: 60 Year
  Sex: Female

DRUGS (3)
  1. JAKAVI [Suspect]
     Indication: MYELOFIBROSIS
     Dosage: 15 MG, BID
     Route: 048
     Dates: start: 201206
  2. JAKAVI [Suspect]
     Dosage: 10 MG, BID
     Route: 048
  3. LODOZ [Concomitant]
     Dosage: UNK
     Dates: start: 2006

REACTIONS (1)
  - Ophthalmic herpes simplex [Recovered/Resolved]
